FAERS Safety Report 12187367 (Version 3)
Quarter: 2016Q2

REPORT INFORMATION
  Report Type: Spontaneous
  Country: JP (occurrence: JP)
  Receive Date: 20160317
  Receipt Date: 20160407
  Transmission Date: 20160815
  Serious: Yes (Hospitalization)
  Sender: FDA-Public Use
  Company Number: JP-BEH-2016060140

PATIENT
  Age: 37 Year
  Sex: Male

DRUGS (2)
  1. INTRAVENOUS GAMMAGLOBULIN [Suspect]
     Active Substance: HUMAN IMMUNOGLOBULIN G
     Indication: IMMUNODEFICIENCY COMMON VARIABLE
     Dosage: SINGLE DOSE
     Route: 042
  2. INTRAVENOUS GAMMAGLOBULIN [Suspect]
     Active Substance: HUMAN IMMUNOGLOBULIN G
     Indication: IMMUNODEFICIENCY COMMON VARIABLE
     Dosage: SINGLE DOSE
     Route: 042

REACTIONS (10)
  - Dysarthria [Recovered/Resolved]
  - Coordination abnormal [Recovered/Resolved]
  - Cerebrovascular accident [Recovered/Resolved]
  - Ischaemic stroke [Recovered/Resolved]
  - Hypoaesthesia [Recovered/Resolved]
  - Cerebral infarction [Recovered/Resolved]
  - Hemiplegia [Recovered/Resolved]
  - Aphasia [Recovered/Resolved]
  - Hyperreflexia [Recovered/Resolved]
  - Facial paralysis [Recovered/Resolved]
